FAERS Safety Report 11717909 (Version 2)
Quarter: 2015Q4

REPORT INFORMATION
  Report Type: Spontaneous
  Country: HU (occurrence: HU)
  Receive Date: 20151110
  Receipt Date: 20151113
  Transmission Date: 20160304
  Serious: Yes (Other)
  Sender: FDA-Public Use
  Company Number: HU-AMGEN-HUNSP2015117820

PATIENT
  Age: 69 Year
  Sex: Female
  Weight: 77 kg

DRUGS (21)
  1. TORVALIPIN [Concomitant]
     Indication: HYPERLIPIDAEMIA
     Dosage: 1 IN THE EVENING
  2. VALSARTAN SANDOZ [Concomitant]
     Active Substance: VALSARTAN
     Indication: HYPERTENSION
     Dosage: 1/2 IN THE EVENING
  3. NITRO-DUR [Concomitant]
     Active Substance: NITROGLYCERIN
     Indication: CARDIAC DISORDER
     Dosage: FOR 2 YEARS, 0,4 MG/H 1X1, DAYLIGHT HOURS
     Route: 062
  4. PANTOPRAZOL KRKA [Concomitant]
     Indication: PROPHYLAXIS
     Dosage: 1 IN THE MORNING
  5. VITAMIN D3 FRESENIUS [Concomitant]
     Indication: OSTEOPOROSIS
     Dosage: 1 IN THE MORNING
  6. ENBREL [Suspect]
     Active Substance: ETANERCEPT
     Indication: RHEUMATOID ARTHRITIS
     Dosage: 1X1 , WEEKLY
     Route: 065
     Dates: start: 2012
  7. MEZITAN [Concomitant]
     Indication: CARDIAC DISORDER
     Dosage: FOR 1 YEAR, 2X1
  8. TRAMADOLOR [Concomitant]
     Active Substance: TRAMADOL
     Indication: ARTHRALGIA
     Dosage: 1 IN THE MORNING
  9. KALIUM-R [Concomitant]
     Indication: SUPPLEMENTATION THERAPY
     Dosage: 1 IN THE MORNING
  10. THIOGAMMA ORAL [Concomitant]
     Indication: SPINAL PAIN
     Dosage: 1 IN THE MORINING
     Route: 048
  11. ASPIRIN. [Concomitant]
     Active Substance: ASPIRIN
     Indication: HAEMODILUTION
     Dosage: 1 IN THE MORNING
  12. CLOPIDOGREL TEVA                   /01220705/ [Concomitant]
     Indication: PROPHYLAXIS
     Dosage: 1 IN THE MORNING
  13. MAGNE B6                           /00869101/ [Concomitant]
     Indication: OSTEOPOROSIS
     Dosage: 1 IN THE EVENING
  14. THIOCTIC ACID [Concomitant]
     Active Substance: THIOCTIC ACID
     Indication: SPINAL PAIN
     Dosage: 1 IN THE MORINING
     Route: 048
  15. CITROKALCIUM [Concomitant]
     Indication: OSTEOPOROSIS
     Dosage: 1 IN THE MORNING
  16. CLOPIDOGREL [Concomitant]
     Active Substance: CLOPIDOGREL BISULFATE
     Indication: PROPHYLAXIS
     Dosage: 1 IN THE MORNING
  17. MEDROL [Concomitant]
     Active Substance: METHYLPREDNISOLONE
     Indication: ARTHRALGIA
     Dosage: 4 MG (1X) EVERY OTHER DAY
  18. MAGNE B6 [Concomitant]
     Active Substance: MAGNESIUM\PYRIDOXINE
     Indication: OSTEOPOROSIS
     Dosage: 1 IN THE EVENING
  19. CONCOR [Concomitant]
     Active Substance: BISOPROLOL FUMARATE
     Indication: CARDIAC DISORDER
     Dosage: 1/2 IN THE MORNING
  20. MEDROL [Concomitant]
     Active Substance: METHYLPREDNISOLONE
     Indication: ARTHRALGIA
     Dosage: 4 MG (1X) EVERY OTHER DAY
  21. VITAMIN D3 [Concomitant]
     Active Substance: CHOLECALCIFEROL
     Indication: OSTEOPOROSIS
     Dosage: 1 IN THE MORNING

REACTIONS (3)
  - Condition aggravated [Not Recovered/Not Resolved]
  - Drug effect incomplete [Unknown]
  - Rheumatoid arthritis [Not Recovered/Not Resolved]

NARRATIVE: CASE EVENT DATE: 2012
